FAERS Safety Report 20193306 (Version 8)
Quarter: 2022Q1

REPORT INFORMATION
  Report Type: Report from Study
  Country: CN (occurrence: None)
  Receive Date: 20211216
  Receipt Date: 20220323
  Transmission Date: 20220424
  Serious: Yes (Hospitalization)
  Sender: FDA-Public Use
  Company Number: CN-ROCHE-2978839

PATIENT
  Age: 71 Year
  Sex: Male
  Weight: 49 kg

DRUGS (30)
  1. PLACEBO [Suspect]
     Active Substance: UNSPECIFIED INGREDIENT
     Indication: Non-small cell lung cancer stage IV
     Dosage: DATE OF MOST RECENT DOSE OF STUDY DRUG PRIOR TO AE: 26/OCT/2021?DATE OF MOST RECENT DOSE OF STUDY DR
     Route: 041
     Dates: start: 20201023
  2. BEVACIZUMAB [Suspect]
     Active Substance: BEVACIZUMAB
     Indication: Non-small cell lung cancer stage IV
     Dosage: DATE OF MOST RECENT DOSE OF STUDY DRUG PRIOR TO AE: 26/OCT/2021 ?DATE OF MOST RECENT DOSE OF STUDY D
     Route: 042
     Dates: start: 20201023
  3. CARBOPLATIN [Suspect]
     Active Substance: CARBOPLATIN
     Indication: Non-small cell lung cancer stage IV
     Dosage: DATE OF MOST RECENT DOSE OF STUDY DRUG PRIOR TO AE + SAE: 24/DEC/2020
     Route: 042
     Dates: start: 20201023
  4. PEMETREXED [Suspect]
     Active Substance: PEMETREXED
     Indication: Non-small cell lung cancer stage IV
     Dosage: DATE OF MOST RECENT DOSE OF STUDY DRUG PRIOR TO AE: 26/OCT/2021 (730 MG)?DATE OF MOST RECENT DOSE OF
     Route: 042
     Dates: start: 20201023
  5. LEUCOGEN [Concomitant]
     Active Substance: LEUCOGEN
     Dates: start: 20210408
  6. TROPISETRON HYDROCHLORIDE [Concomitant]
     Active Substance: TROPISETRON HYDROCHLORIDE
     Dates: start: 20211026, end: 20211026
  7. TROPISETRON HYDROCHLORIDE [Concomitant]
     Active Substance: TROPISETRON HYDROCHLORIDE
     Dates: start: 20211119, end: 20211119
  8. TROPISETRON HYDROCHLORIDE [Concomitant]
     Active Substance: TROPISETRON HYDROCHLORIDE
     Dates: start: 20211210, end: 20211212
  9. PANTOPRAZOLE SODIUM [Concomitant]
     Active Substance: PANTOPRAZOLE SODIUM
     Dates: start: 20211026, end: 20211026
  10. PANTOPRAZOLE SODIUM [Concomitant]
     Active Substance: PANTOPRAZOLE SODIUM
     Dates: start: 20211119, end: 20211119
  11. PANTOPRAZOLE SODIUM [Concomitant]
     Active Substance: PANTOPRAZOLE SODIUM
     Dates: start: 20211210, end: 20211213
  12. DEXAMETHASONE ACETATE [Concomitant]
     Active Substance: DEXAMETHASONE ACETATE
     Dosage: SUBSEQUENT DOSE: 26/OCT/2021-28/OCT/2021, 18/NOV/2021
     Route: 048
     Dates: start: 20211025, end: 20211025
  13. DEXAMETHASONE ACETATE [Concomitant]
     Active Substance: DEXAMETHASONE ACETATE
     Route: 048
     Dates: start: 20211119, end: 20211120
  14. DEXAMETHASONE ACETATE [Concomitant]
     Active Substance: DEXAMETHASONE ACETATE
     Route: 048
     Dates: start: 20211121, end: 20211121
  15. DEXAMETHASONE ACETATE [Concomitant]
     Active Substance: DEXAMETHASONE ACETATE
     Route: 048
     Dates: start: 20211209, end: 20211209
  16. DEXAMETHASONE ACETATE [Concomitant]
     Active Substance: DEXAMETHASONE ACETATE
     Route: 048
     Dates: start: 20211210, end: 20211211
  17. DEXAMETHASONE ACETATE [Concomitant]
     Active Substance: DEXAMETHASONE ACETATE
     Route: 048
     Dates: start: 20211212, end: 20211212
  18. MAGNESIUM ISOGLYCYRRHIZINATE [Concomitant]
     Active Substance: MAGNESIUM ISOGLYCYRRHIZINATE
     Dates: start: 20211026, end: 20211026
  19. MAGNESIUM ISOGLYCYRRHIZINATE [Concomitant]
     Active Substance: MAGNESIUM ISOGLYCYRRHIZINATE
     Dates: start: 20211119, end: 20211119
  20. MAGNESIUM ISOGLYCYRRHIZINATE [Concomitant]
     Active Substance: MAGNESIUM ISOGLYCYRRHIZINATE
     Dates: start: 20211210, end: 20211213
  21. POTASSIUM CHLORIDE [Concomitant]
     Active Substance: POTASSIUM CHLORIDE
     Indication: Hypokalaemia
     Dates: start: 20211026, end: 20211026
  22. POTASSIUM CHLORIDE [Concomitant]
     Active Substance: POTASSIUM CHLORIDE
     Dates: start: 20211210, end: 20211210
  23. LACTULOSE [Concomitant]
     Active Substance: LACTULOSE
     Indication: Constipation
     Dates: start: 20211027, end: 20211029
  24. LACTULOSE [Concomitant]
     Active Substance: LACTULOSE
     Dates: start: 20211213, end: 20211216
  25. PEGYLATED RECOMBINANT HUMAN GRANULOCYTE COLONY STIMULATING FACTOR [Concomitant]
     Dates: start: 20211028, end: 20211028
  26. PEGYLATED RECOMBINANT HUMAN GRANULOCYTE COLONY STIMULATING FACTOR [Concomitant]
     Dates: start: 20211121, end: 20211121
  27. PEGYLATED RECOMBINANT HUMAN GRANULOCYTE COLONY STIMULATING FACTOR [Concomitant]
     Dates: start: 20211212, end: 20211212
  28. METHYLCOBALAMIN [Concomitant]
     Active Substance: METHYLCOBALAMIN
     Dates: start: 20211119, end: 20211119
  29. SUHUANG COUGH CAPSULE [Concomitant]
     Dates: start: 20211213
  30. COMPOUND PLATYCODON [Concomitant]
     Dates: start: 20211213

REACTIONS (1)
  - Decreased appetite [Recovered/Resolved]

NARRATIVE: CASE EVENT DATE: 20211118
